FAERS Safety Report 15604082 (Version 1)
Quarter: 2018Q4

REPORT INFORMATION
  Report Type: Spontaneous
  Country: US (occurrence: US)
  Receive Date: 20181109
  Receipt Date: 20181109
  Transmission Date: 20190205
  Serious: No
  Sender: FDA-Public Use
  Company Number: PHEH2018US047120

PATIENT
  Sex: Male

DRUGS (1)
  1. ENTRESTO [Suspect]
     Active Substance: SACUBITRIL\VALSARTAN
     Indication: CARDIAC FAILURE
     Dosage: 50 MG, UNK
     Route: 065

REACTIONS (6)
  - Dyspnoea [Unknown]
  - Nervousness [Unknown]
  - Insomnia [Unknown]
  - Asthenia [Unknown]
  - Pruritus [Unknown]
  - Fatigue [Unknown]
